APPROVED DRUG PRODUCT: TRIAMCINOLONE ACETONIDE
Active Ingredient: TRIAMCINOLONE ACETONIDE
Strength: 10MG/ML
Dosage Form/Route: INJECTABLE;INJECTION
Application: A090166 | Product #001
Applicant: CAPLIN STERILES LTD
Approved: May 27, 2009 | RLD: No | RS: No | Type: DISCN